FAERS Safety Report 14975088 (Version 1)
Quarter: 2018Q2

REPORT INFORMATION
  Report Type: Report from Study
  Country: BR (occurrence: BR)
  Receive Date: 20180605
  Receipt Date: 20180605
  Transmission Date: 20180711
  Serious: Yes (Other)
  Sender: FDA-Public Use
  Company Number: PHHY2017BR030389

PATIENT
  Sex: Female
  Weight: 75 kg

DRUGS (5)
  1. DIOVAN AMLO FIX [Suspect]
     Active Substance: AMLODIPINE\VALSARTAN
     Indication: HYPERTENSION
     Dosage: (AMLODIPINE 5 MG/ VALSARTAN 80 MG)
     Route: 065
  2. VALSARTAN. [Suspect]
     Active Substance: VALSARTAN
     Dosage: 1.5 DF (160), QD
     Route: 065
  3. DIOVAN AMLO FIX [Suspect]
     Active Substance: AMLODIPINE\VALSARTAN
     Dosage: 1 DF (AMLODIPINE 5 MG/ VALSARTAN 160 MG), QD
     Route: 048
  4. AMLODIPINE [Suspect]
     Active Substance: AMLODIPINE BESYLATE
     Indication: PRODUCT USED FOR UNKNOWN INDICATION
     Route: 065
  5. VALSARTAN. [Suspect]
     Active Substance: VALSARTAN
     Indication: HYPERTENSION
     Dosage: 160 MG, QD
     Route: 048

REACTIONS (10)
  - Incomplete spinal fusion [Not Recovered/Not Resolved]
  - Wrong technique in product usage process [Unknown]
  - Incorrect dose administered [Unknown]
  - Hypertension [Unknown]
  - Drug intolerance [Unknown]
  - Spinal pain [Unknown]
  - Drug ineffective [Unknown]
  - Mass [Not Recovered/Not Resolved]
  - Malaise [Unknown]
  - Pain [Unknown]
